FAERS Safety Report 26059954 (Version 1)
Quarter: 2025Q4

REPORT INFORMATION
  Report Type: Spontaneous
  Country: US (occurrence: US)
  Receive Date: 20251118
  Receipt Date: 20251118
  Transmission Date: 20260118
  Serious: No
  Sender: VERTEX
  Company Number: US-VERTEX PHARMACEUTICALS-2025-018978

PATIENT

DRUGS (3)
  1. JOURNAVX [Suspect]
     Active Substance: SUZETRIGINE
     Indication: Fibromyalgia
     Dosage: UNK
     Route: 048
     Dates: start: 2025
  2. JOURNAVX [Suspect]
     Active Substance: SUZETRIGINE
     Indication: Ehlers-Danlos syndrome
  3. JOURNAVX [Suspect]
     Active Substance: SUZETRIGINE
     Indication: Pain

REACTIONS (3)
  - Burning sensation [Unknown]
  - Paraesthesia [Unknown]
  - Off label use [Unknown]

NARRATIVE: CASE EVENT DATE: 20250101
